FAERS Safety Report 17520012 (Version 2)
Quarter: 2020Q2

REPORT INFORMATION
  Report Type: Spontaneous
  Country: FR (occurrence: FR)
  Receive Date: 20200310
  Receipt Date: 20200520
  Transmission Date: 20200713
  Serious: Yes (Life-Threatening, Hospitalization, Other)
  Sender: FDA-Public Use
  Company Number: FR-BRISTOL-MYERS SQUIBB COMPANY-BMS-2020-019476

PATIENT
  Age: 80 Year
  Sex: Female
  Weight: 57 kg

DRUGS (5)
  1. DOLIPRANE [Concomitant]
     Active Substance: ACETAMINOPHEN
     Indication: PAIN
     Dosage: 1 DOSAGE FORM (2 CAPSULES), TID
     Route: 048
  2. ELIQUIS [Suspect]
     Active Substance: APIXABAN
     Indication: CEREBROVASCULAR ACCIDENT PROPHYLAXIS
     Dosage: 2.5 MILLIGRAM, BID
     Route: 048
     Dates: start: 20191104, end: 20200110
  3. XANAX [Concomitant]
     Active Substance: ALPRAZOLAM
     Indication: ANXIETY
     Dosage: 1 DOSAGE FORM (HALF TABLET), TID
     Route: 048
  4. LANSOYL [Concomitant]
     Active Substance: MINERAL OIL
     Indication: CONSTIPATION
     Dosage: 1 DOSAGE FORM (2 DOSES)
     Route: 048
  5. BISOCE [Concomitant]
     Active Substance: BISOPROLOL
     Indication: PRODUCT USED FOR UNKNOWN INDICATION
     Dosage: 1.25 MILLIGRAM, QD
     Route: 048

REACTIONS (2)
  - Dysphagia [Unknown]
  - Lower gastrointestinal haemorrhage [Recovered/Resolved]

NARRATIVE: CASE EVENT DATE: 20200110
